FAERS Safety Report 6506238-1 (Version None)
Quarter: 2009Q4

REPORT INFORMATION
  Report Type: 
  Country: None (occurrence: None)
  Receive Date: 20091218
  Receipt Date: 20091209
  Transmission Date: 20100525
  Serious: Yes (Hospitalization)
  Sender: FDA-Public Use
  Company Number: PHHY2009DE55312

PATIENT
  Sex: Female
  Weight: 95 kg

DRUGS (4)
  1. PROVAS [Suspect]
     Dosage: 3 X 0.5 TABLETS (320 MG)
     Route: 048
  2. ASPIRIN [Suspect]
     Dosage: 3 TABLETS (300 MG)
     Route: 048
  3. AMLODIPINE [Suspect]
     Dosage: 3 X 0.5 TABLETS (7.5 MG)
     Route: 048
  4. NOVONORM [Suspect]
     Dosage: 3 TABLETS (1.5 MG)
     Route: 048

REACTIONS (1)
  - SUICIDE ATTEMPT [None]
